FAERS Safety Report 7125796-X (Version None)
Quarter: 2010Q4

REPORT INFORMATION
  Report Type: 
  Country: None (occurrence: None)
  Receive Date: 20101129
  Receipt Date: 20101119
  Transmission Date: 20110411
  Serious: Yes (Other)
  Sender: FDA-Public Use
  Company Number: B0686103A

PATIENT
  Sex: Male

DRUGS (2)
  1. AVODART [Suspect]
     Route: 065
  2. STATINS [Concomitant]

REACTIONS (1)
  - HEPATIC ENZYME ABNORMAL [None]
